FAERS Safety Report 6861353-8 (Version None)
Quarter: 2010Q3

REPORT INFORMATION
  Report Type: 
  Country: None (occurrence: None)
  Receive Date: 20100715
  Receipt Date: 20100702
  Transmission Date: 20110219
  Serious: Yes (Other)
  Sender: FDA-Public Use
  Company Number: 2010AP001368

PATIENT
  Age: 65 Year
  Sex: Male

DRUGS (13)
  1. AMIODARONE HCL [Suspect]
     Indication: ATRIAL FIBRILLATION
     Dosage: 200 MG; QD
  2. TACROLIMUS [Suspect]
     Indication: IMMUNOSUPPRESSION
     Dosage: 3 MG; BID PO, 1.5 MG; PO; BID
     Route: 048
  3. CORTICOSTEROIDS (CORTICOSTEROIDS) [Concomitant]
  4. MYCOPHENOLATE MOFETIL [Concomitant]
  5. SULFAMETHOXAZOLE AND TRIMETHOPRIM [Concomitant]
  6. METOPROLOL SUCCINATE [Concomitant]
  7. NIFEDIPINE [Concomitant]
  8. SIMVASTATIN [Concomitant]
  9. INSULIN (INSULIN) [Concomitant]
  10. LANSOPRAZOLE [Concomitant]
  11. BETAHISTINE (BETAHISTINE) [Concomitant]
  12. CALCIUM CARBONATE [Concomitant]
  13. ALFACALCIDOL (ALFACALCIDOL) [Concomitant]

REACTIONS (4)
  - DRUG INTERACTION [None]
  - ELECTROCARDIOGRAM QT PROLONGED [None]
  - IMMUNOSUPPRESSANT DRUG LEVEL INCREASED [None]
  - RENAL TRANSPLANT [None]
